FAERS Safety Report 7413089-2 (Version None)
Quarter: 2011Q2

REPORT INFORMATION
  Report Type: 
  Country: None (occurrence: None)
  Receive Date: 20110413
  Receipt Date: 20110411
  Transmission Date: 20111010
  Serious: Yes (Hospitalization)
  Sender: FDA-Public Use
  Company Number: CH-PFIZER INC-2011079726

PATIENT
  Age: 65 Year
  Sex: Female
  Weight: 81 kg

DRUGS (7)
  1. CORVERT [Suspect]
     Indication: ATRIAL FIBRILLATION
     Dosage: 1 MG, SINGLE
     Route: 040
     Dates: start: 20110201, end: 20110201
  2. CORDARONE [Interacting]
     Indication: ATRIAL FLUTTER
  3. CORVERT [Interacting]
     Indication: ATRIAL FLUTTER
  4. BELOC ZOK [Concomitant]
     Indication: ATRIAL FIBRILLATION
     Dosage: 25 MG, 1X/DAY
     Route: 048
     Dates: start: 20110131
  5. CORDARONE [Interacting]
     Indication: ATRIAL FIBRILLATION
     Dosage: 900 MG/24H, UNK
     Route: 041
     Dates: start: 20110131, end: 20110201
  6. DIGOXIN [Concomitant]
     Dosage: 0.25 MG, SINGLE
     Route: 042
  7. BELOC ZOK [Concomitant]
     Indication: ATRIAL FLUTTER

REACTIONS (6)
  - ELECTROCARDIOGRAM QT PROLONGED [None]
  - TORSADE DE POINTES [None]
  - BUNDLE BRANCH BLOCK LEFT [None]
  - SINUS BRADYCARDIA [None]
  - VENTRICULAR TACHYCARDIA [None]
  - DRUG INTERACTION [None]
